FAERS Safety Report 6673511-6 (Version None)
Quarter: 2010Q2

REPORT INFORMATION
  Report Type: 
  Country: None (occurrence: None)
  Receive Date: 20100408
  Receipt Date: 20100331
  Transmission Date: 20101027
  Serious: Yes (Other)
  Sender: FDA-Public Use
  Company Number: DE-SANOFI-AVENTIS-2010SA018469

PATIENT
  Age: 66 Year
  Sex: Female

DRUGS (5)
  1. MULTAQ [Suspect]
     Indication: DRUG USE FOR UNKNOWN INDICATION
     Route: 065
     Dates: start: 20100303
  2. TENORMIN [Concomitant]
     Indication: DRUG USE FOR UNKNOWN INDICATION
     Route: 065
     Dates: start: 20100303
  3. LEVOTHYROXINE SODIUM [Concomitant]
     Indication: DRUG USE FOR UNKNOWN INDICATION
     Route: 065
  4. ACETYLSALICYLIC ACID [Concomitant]
     Indication: DRUG USE FOR UNKNOWN INDICATION
     Route: 065
  5. BUPIVACAIN [Concomitant]
     Route: 065
     Dates: start: 20100329, end: 20100329

REACTIONS (5)
  - EXTRASYSTOLES [None]
  - HALLUCINATION [None]
  - RESPIRATORY DISORDER [None]
  - RESTLESSNESS [None]
  - SENSATION OF FOREIGN BODY [None]
